FAERS Safety Report 7627401-2 (Version None)
Quarter: 2011Q3

REPORT INFORMATION
  Report Type: 
  Country: None (occurrence: None)
  Receive Date: 20110721
  Receipt Date: 20110712
  Transmission Date: 20111222
  Serious: Yes (Life-Threatening)
  Sender: FDA-Public Use
  Company Number: FR-SANOFI-AVENTIS-2011SA021632

PATIENT
  Age: 78 Year
  Sex: Male

DRUGS (19)
  1. PLAVIX [Concomitant]
     Route: 065
  2. PERINDOPRIL ERBUMINE [Concomitant]
     Route: 065
  3. PERMIXON [Concomitant]
     Route: 065
  4. ATORVASTATIN CALCIUM [Suspect]
     Route: 048
     Dates: end: 20110306
  5. VITAMIN B6 [Concomitant]
     Route: 065
  6. XALATAN [Concomitant]
     Route: 065
  7. ARIXTRA [Concomitant]
     Route: 065
  8. IMOVANE [Concomitant]
     Route: 065
  9. SUCRALFATE [Concomitant]
     Route: 065
  10. RIFADIN [Suspect]
     Indication: OSTEITIS
     Route: 048
     Dates: start: 20110301, end: 20110304
  11. KARDEGIC [Concomitant]
     Route: 065
  12. TARGOCID [Suspect]
     Indication: OSTEITIS
     Dosage: FROM 700 TO 1600 MG DAILY
     Route: 051
     Dates: start: 20110222, end: 20110303
  13. ALPRAZOLAM [Suspect]
     Indication: ANXIETY
     Route: 048
     Dates: start: 20110227, end: 20110306
  14. MIRTAZAPINE [Suspect]
     Indication: DEPRESSION
     Route: 048
     Dates: start: 20110301, end: 20110306
  15. BISOPROLOL FUMARATE [Concomitant]
     Route: 065
  16. UVEDOSE [Concomitant]
     Route: 065
  17. COSOPT [Concomitant]
     Route: 065
  18. INSPRA [Concomitant]
     Route: 065
  19. VITAMIN B1 TAB [Concomitant]
     Route: 065

REACTIONS (4)
  - CYTOLYTIC HEPATITIS [None]
  - NAUSEA [None]
  - VOMITING [None]
  - HEPATIC FAILURE [None]
